FAERS Safety Report 24811659 (Version 1)
Quarter: 2025Q1

REPORT INFORMATION
  Report Type: Spontaneous
  Country: US (occurrence: None)
  Receive Date: 20250103
  Receipt Date: 20250103
  Transmission Date: 20250408
  Serious: Yes (Other)
  Sender: FDA-CTU
  Company Number: None

PATIENT
  Age: 75 Year
  Sex: Female
  Weight: 55.79 kg

DRUGS (1)
  1. ZOLEDRONIC ACID [Suspect]
     Active Substance: ZOLEDRONIC ACID
     Indication: Osteoporosis
     Dosage: FREQUENCY : EVERY YEAR;?
     Route: 042
     Dates: start: 20241121, end: 20241121

REACTIONS (2)
  - Arthralgia [None]
  - Headache [None]

NARRATIVE: CASE EVENT DATE: 20241121
